FAERS Safety Report 8664413 (Version 3)
Quarter: 2012Q4

REPORT INFORMATION
  Report Type: 
  Country: GB (occurrence: GB)
  Receive Date: 20120713
  Receipt Date: 20120905
  Transmission Date: 20130627
  Serious: Yes (Hospitalization)
  Sender: FDA-Public Use
  Company Number: GB-B.I. PHARMACEUTICALS,INC./RIDGEFIELD-2012-BP-11250YA

PATIENT
  Age: 74 Year
  Sex: Male

DRUGS (6)
  1. TAMSULOSINA [Suspect]
     Dosage: 400 mg
     Route: 048
     Dates: start: 20110404, end: 20120423
  2. SUTENT [Suspect]
     Indication: TRANSITIONAL CELL CARCINOMA
     Dosage: 25 mg
     Route: 065
     Dates: start: 20120404, end: 20120408
  3. CISPLATIN [Suspect]
     Dosage: 140 mg
     Route: 042
     Dates: start: 20120404, end: 20120404
  4. AMIODARONE [Suspect]
     Dosage: 100 mg
     Route: 048
     Dates: start: 19920305
  5. MEDICATION NOT FURTHER SPECIFIED [Suspect]
     Dosage: 5 mg
     Dates: start: 19970107
  6. GEMCITABINE (GEMCITABINE) [Concomitant]
     Route: 042
     Dates: start: 20120404

REACTIONS (10)
  - Hypotension [Recovered/Resolved]
  - Dizziness [Not Recovered/Not Resolved]
  - Malaise [Unknown]
  - Haematuria [Not Recovered/Not Resolved]
  - Blood sodium decreased [Not Recovered/Not Resolved]
  - Autonomic neuropathy [Recovered/Resolved]
  - Hypovolaemia [None]
  - Orthostatic hypotension [None]
  - Hypophagia [None]
  - Nausea [None]
